FAERS Safety Report 6717548-7 (Version None)
Quarter: 2010Q2

REPORT INFORMATION
  Report Type: 
  Country: None (occurrence: None)
  Receive Date: 20100510
  Receipt Date: 20100503
  Transmission Date: 20101027
  Serious: Yes (Other)
  Sender: FDA-Public Use
  Company Number: US-RB-018300-09

PATIENT
  Sex: Female

DRUGS (2)
  1. SUBOXONE [Suspect]
     Route: 060
  2. XANAX [Suspect]
     Indication: DRUG DEPENDENCE
     Dosage: UNKNOWN DOSING DETAILS
     Route: 065
     Dates: end: 20090701

REACTIONS (1)
  - CONVULSION [None]
